FAERS Safety Report 21652140 (Version 1)
Quarter: 2022Q4

REPORT INFORMATION
  Report Type: Spontaneous
  Country: SE (occurrence: SE)
  Receive Date: 20221128
  Receipt Date: 20221128
  Transmission Date: 20230113
  Serious: Yes (Other)
  Sender: FDA-Public Use
  Company Number: None

PATIENT
  Age: 61 Year
  Sex: Male

DRUGS (18)
  1. INLYTA [Suspect]
     Active Substance: AXITINIB
     Indication: Renal cancer metastatic
     Dosage: 1 DF, 2X/DAY
     Dates: start: 20220622, end: 20220922
  2. KEYTRUDA [Suspect]
     Active Substance: PEMBROLIZUMAB
     Indication: Renal cancer metastatic
     Dosage: UNK
     Dates: start: 20220809
  3. FRAGMIN [Concomitant]
     Active Substance: DALTEPARIN SODIUM
     Dosage: 1 DF, 1X/DAY (1 AT 6 PM)
     Dates: start: 20220616
  4. PREDNISOLONE [Concomitant]
     Active Substance: PREDNISOLONE
     Dosage: 1 DF, 1X/DAY (1 AT 8 AM)
     Dates: start: 20220518
  5. OXYCODONE HYDROCHLORIDE [Concomitant]
     Active Substance: OXYCODONE HYDROCHLORIDE
     Dosage: 2 DF, AS NEEDED
     Dates: start: 20220926
  6. BETAPRED [Concomitant]
     Active Substance: BETAMETHASONE SODIUM PHOSPHATE
     Dosage: UNK
     Dates: start: 20220930, end: 20221102
  7. MOVICOL [Concomitant]
     Active Substance: POLYETHYLENE GLYCOL 3350\POTASSIUM CHLORIDE\SODIUM BICARBONATE\SODIUM CHLORIDE
     Dosage: UNK
     Dates: start: 20220503
  8. METHOTREXATE SODIUM [Concomitant]
     Active Substance: METHOTREXATE SODIUM
     Dosage: 7 DF, WEEKLY (7 EVERY 1 WEEK UNTIL FURTHER NOTICE)
     Dates: start: 20201130
  9. CYANOCOBALAMIN [Concomitant]
     Active Substance: CYANOCOBALAMIN
     Dosage: 1 DF, 1X/DAY
     Dates: start: 20220616
  10. ENALAPRIL MALEATE [Concomitant]
     Active Substance: ENALAPRIL MALEATE
     Dosage: 1 DF, 1X/DAY
     Dates: start: 20210904
  11. LAKTULOS MEDA [Concomitant]
     Dosage: 10-25 ONCE DAILY
     Dates: start: 20220824
  12. SIMVASTATIN [Concomitant]
     Active Substance: SIMVASTATIN
     Dosage: 1 DF, 1X/DAY (1 AT NIGHT)
     Dates: start: 20201130
  13. OLANZAPINE [Concomitant]
     Active Substance: OLANZAPINE
     Dosage: 1 DF, AS NEEDED (1 AT 8 PM WHEN NEEDED)
     Dates: start: 20220928
  14. UREA [Concomitant]
     Active Substance: UREA
     Dosage: 1 DF, AS NEEDED
     Dates: start: 20220712
  15. FELODIPIN ACTAVIS [Concomitant]
     Dosage: 1 DF, 1X/DAY
     Dates: start: 20210904
  16. METOCLOPRAMIDE [Concomitant]
     Active Substance: METOCLOPRAMIDE
     Dosage: 1 DF, 3X/DAY (1 AT 7 AM,1 AT 11 AM, 1 AT 5 PM)
     Dates: start: 20220922
  17. TARGINIQ ER [Concomitant]
     Active Substance: NALOXONE HYDROCHLORIDE\OXYCODONE HYDROCHLORIDE
     Dosage: 5 DF, DAILY (2 DF IN MORNING, 3 DF AT NIGHT)
     Dates: start: 20220920
  18. FOLSYRA EVOLAN [Concomitant]
     Dosage: UNK
     Dates: start: 20201217

REACTIONS (1)
  - Renal failure [Not Recovered/Not Resolved]

NARRATIVE: CASE EVENT DATE: 20221102
